FAERS Safety Report 10010208 (Version 3)
Quarter: 2015Q1

REPORT INFORMATION
  Report Type: Spontaneous
  Country: GB (occurrence: GB)
  Receive Date: 20140313
  Receipt Date: 20150204
  Transmission Date: 20150720
  Serious: Yes (Disabling, Other)
  Sender: FDA-Public Use
  Company Number: GB-009507513-1403GBR004012

PATIENT
  Sex: Female

DRUGS (4)
  1. SIMVASTATIN. [Suspect]
     Active Substance: SIMVASTATIN
     Dosage: 40 MG, UNK
     Route: 048
     Dates: start: 2010, end: 201401
  2. RANITIDINE [Concomitant]
     Active Substance: RANITIDINE\RANITIDINE HYDROCHLORIDE
  3. ATENOLOL. [Concomitant]
     Active Substance: ATENOLOL
  4. LEVOTHYROXINE SODIUM. [Concomitant]
     Active Substance: LEVOTHYROXINE SODIUM
     Route: 048

REACTIONS (8)
  - Fatigue [Recovered/Resolved]
  - Myalgia [Recovered/Resolved]
  - Arthralgia [Recovered/Resolved]
  - Joint stiffness [Recovered/Resolved]
  - Balance disorder [Recovered/Resolved]
  - Muscle spasms [Recovered/Resolved]
  - Muscular weakness [Recovered/Resolved]
  - Arthritis [Unknown]

NARRATIVE: CASE EVENT DATE: 201205
